FAERS Safety Report 5396758-8 (Version None)
Quarter: 2007Q3

REPORT INFORMATION
  Report Type: 
  Country: None (occurrence: None)
  Receive Date: 20070725
  Receipt Date: 20070713
  Transmission Date: 20080115
  Serious: Yes (Hospitalization)
  Sender: FDA-Public Use
  Company Number: US-SANOFI-SYNTHELABO-A03200704664

PATIENT
  Age: 77 Year
  Sex: Female
  Weight: 81.6 kg

DRUGS (3)
  1. AMBIEN [Suspect]
     Indication: INSOMNIA
     Dosage: UNK
     Route: 048
     Dates: start: 20070301
  2. BLOOD PRESSURE MEDICATION [Concomitant]
     Dosage: UNK
     Route: 048
  3. GLUCOPHAGE [Concomitant]
     Dosage: UNK
     Route: 048

REACTIONS (9)
  - ANOREXIA [None]
  - DELIRIUM [None]
  - DIARRHOEA [None]
  - DIVERTICULITIS [None]
  - DIZZINESS [None]
  - DRUG DEPENDENCE [None]
  - MEMORY IMPAIRMENT [None]
  - MOOD SWINGS [None]
  - WEIGHT DECREASED [None]
